FAERS Safety Report 7409533-7 (Version None)
Quarter: 2011Q2

REPORT INFORMATION
  Report Type: 
  Country: None (occurrence: None)
  Receive Date: 20110407
  Receipt Date: 20110407
  Transmission Date: 20111010
  Serious: Yes (Other)
  Sender: FDA-Public Use
  Company Number: None

PATIENT
  Age: 50 Year
  Sex: Female
  Weight: 101.6057 kg

DRUGS (2)
  1. CYMBALTA [Suspect]
     Indication: RADICULOPATHY
     Dosage: 30 1X DAY
     Dates: start: 20101118, end: 20110322
  2. CYMBALTA [Suspect]
     Indication: NEUROPATHY PERIPHERAL
     Dosage: 30 1X DAY
     Dates: start: 20101118, end: 20110322

REACTIONS (9)
  - DEPRESSED MOOD [None]
  - FORMICATION [None]
  - NIGHTMARE [None]
  - LIBIDO DECREASED [None]
  - COLD SWEAT [None]
  - PRURITUS [None]
  - TACHYPHRENIA [None]
  - RASH [None]
  - FEELING ABNORMAL [None]
